FAERS Safety Report 18557656 (Version 1)
Quarter: 2020Q4

REPORT INFORMATION
  Report Type: Other
  Country: IL (occurrence: IL)
  Receive Date: 20201130
  Receipt Date: 20201130
  Transmission Date: 20210114
  Serious: Yes (Death)
  Sender: FDA-Public Use
  Company Number: IL-ROCHE-2723578

PATIENT

DRUGS (2)
  1. CYCLOPHOSPHAMIDE. [Suspect]
     Active Substance: CYCLOPHOSPHAMIDE
     Indication: ANTIPHOSPHOLIPID SYNDROME
     Route: 065
  2. RITUXIMAB. [Suspect]
     Active Substance: RITUXIMAB
     Indication: ANTIPHOSPHOLIPID SYNDROME
     Dosage: 2 WEEKS APART
     Route: 065

REACTIONS (1)
  - Infection [Fatal]
